FAERS Safety Report 5294243-5 (Version None)
Quarter: 2007Q2

REPORT INFORMATION
  Report Type: 
  Country: None (occurrence: None)
  Receive Date: 20070409
  Receipt Date: 20070409
  Transmission Date: 20071010
  Serious: Yes (Other)
  Sender: FDA-Public Use
  Company Number: None

PATIENT
  Age: 31 Year
  Sex: Female
  Weight: 47.6277 kg

DRUGS (3)
  1. SERTRALINE [Suspect]
     Indication: DEPRESSION
     Dosage: 100 ONCE A DAY PO
     Route: 048
     Dates: start: 20070202, end: 20070329
  2. SERTRALINE [Suspect]
     Indication: PANIC DISORDER WITH AGORAPHOBIA
     Dosage: 100 ONCE A DAY PO
     Route: 048
     Dates: start: 20070202, end: 20070329
  3. SERTRALINE HCI [Concomitant]

REACTIONS (9)
  - ANXIETY [None]
  - FATIGUE [None]
  - LETHARGY [None]
  - NASOPHARYNGITIS [None]
  - PANIC DISORDER [None]
  - PHARMACEUTICAL PRODUCT COMPLAINT [None]
  - RASH [None]
  - SOMNOLENCE [None]
  - THERAPEUTIC RESPONSE UNEXPECTED WITH DRUG SUBSTITUTION [None]
